FAERS Safety Report 8379321-6 (Version None)
Quarter: 2012Q2

REPORT INFORMATION
  Report Type: 
  Country: None (occurrence: None)
  Receive Date: 20120523
  Receipt Date: 20120518
  Transmission Date: 20120825
  Serious: Yes (Hospitalization, Other)
  Sender: FDA-Public Use
  Company Number: PHEH2012US008237

PATIENT
  Sex: Male

DRUGS (1)
  1. TRILEPTAL [Suspect]

REACTIONS (5)
  - BLOOD POTASSIUM DECREASED [None]
  - FATIGUE [None]
  - RED BLOOD CELL COUNT DECREASED [None]
  - CONVULSION [None]
  - BLOOD ELECTROLYTES DECREASED [None]
